FAERS Safety Report 10249313 (Version 1)
Quarter: 2014Q2

REPORT INFORMATION
  Report Type: Spontaneous
  Country: US (occurrence: None)
  Receive Date: 20140619
  Receipt Date: 20140619
  Transmission Date: 20141212
  Serious: Yes (Life-Threatening)
  Sender: FDA-Public Use
  Company Number: None

PATIENT
  Age: 54 Year
  Sex: Female
  Weight: 141.52 kg

DRUGS (1)
  1. METFORMIN [Suspect]
     Indication: TYPE 2 DIABETES MELLITUS
     Dosage: 1 PILL, TWICE DAILY
     Dates: start: 20140606, end: 20140617

REACTIONS (5)
  - Accidental overdose [None]
  - Drug dispensing error [None]
  - Fatigue [None]
  - Headache [None]
  - Nausea [None]
